FAERS Safety Report 5006599-9 (Version None)
Quarter: 2006Q2

REPORT INFORMATION
  Report Type: 
  Country: None (occurrence: None)
  Receive Date: 20060519
  Receipt Date: 20060511
  Transmission Date: 20061013
  Serious: Yes (Other)
  Sender: FDA-Public Use
  Company Number: US-GLAXOSMITHKLINE-A0606097A

PATIENT
  Sex: Female

DRUGS (1)
  1. LAMICTAL [Suspect]
     Indication: BIPOLAR DISORDER
     Route: 048

REACTIONS (4)
  - FATIGUE [None]
  - INSOMNIA [None]
  - MANIA [None]
  - OBSESSIVE-COMPULSIVE DISORDER [None]
